FAERS Safety Report 16572925 (Version 1)
Quarter: 2019Q3

REPORT INFORMATION
  Report Type: Spontaneous
  Country: US (occurrence: US)
  Receive Date: 20190715
  Receipt Date: 20190715
  Transmission Date: 20191004
  Serious: No
  Sender: FDA-Public Use
  Company Number: US-SA-2019SA190551

PATIENT
  Age: 42 Year
  Sex: Female

DRUGS (3)
  1. DUPIXENT [Suspect]
     Active Substance: DUPILUMAB
     Dosage: 300 MG, QOW
     Route: 058
     Dates: start: 20190510
  2. DOXEPIN [Concomitant]
     Active Substance: DOXEPIN
  3. MOZOBIL [Concomitant]
     Active Substance: PLERIXAFOR

REACTIONS (1)
  - Product dose omission [Unknown]
